FAERS Safety Report 8834239 (Version 1)
Quarter: 2012Q4

REPORT INFORMATION
  Report Type: 
  Country: US (occurrence: US)
  Receive Date: 20121010
  Receipt Date: 20121010
  Transmission Date: 20130627
  Serious: Yes (Hospitalization, Other)
  Sender: FDA-Public Use
  Company Number: US-ASTRAZENECA-2012SE75998

PATIENT
  Age: 54 Year
  Sex: Male
  Weight: 98.9 kg

DRUGS (4)
  1. NEXIUM [Suspect]
     Indication: GASTROOESOPHAGEAL REFLUX DISEASE
     Route: 048
  2. SEROQUEL [Suspect]
     Indication: SLEEP DISORDER
     Route: 048
  3. SEROQUEL [Suspect]
     Indication: DEPRESSION
     Route: 048
  4. SEROQUEL [Suspect]
     Indication: ANXIETY
     Route: 048

REACTIONS (6)
  - Perforated ulcer [Unknown]
  - Femur fracture [Unknown]
  - Joint hyperextension [Unknown]
  - Post procedural complication [Unknown]
  - Intentional drug misuse [Unknown]
  - Drug administration error [Unknown]
